FAERS Safety Report 8241331 (Version 3)
Quarter: 2016Q1

REPORT INFORMATION
  Report Type: Spontaneous
  Country: JP (occurrence: JP)
  Receive Date: 20111111
  Receipt Date: 20160110
  Transmission Date: 20160526
  Serious: Yes (Other)
  Sender: FDA-Public Use
  Company Number: PHHY2011JP097187

PATIENT
  Age: 52 Year
  Sex: Female

DRUGS (2)
  1. FLUVOXAMINE [Suspect]
     Active Substance: FLUVOXAMINE
     Indication: DEPRESSION
     Dosage: 50 MG, QD
     Route: 065
  2. AMANTADINE HYDROCHLORIDE. [Interacting]
     Active Substance: AMANTADINE HYDROCHLORIDE
     Indication: ALTERED STATE OF CONSCIOUSNESS
     Dosage: 50 MG, QD
     Route: 065

REACTIONS (6)
  - Dehydration [Recovered/Resolved]
  - Diarrhoea [Recovered/Resolved]
  - Clonus [Recovered/Resolved]
  - Hyperhidrosis [Recovered/Resolved]
  - Serotonin syndrome [Unknown]
  - Drug interaction [Unknown]
